FAERS Safety Report 7986608-5 (Version None)
Quarter: 2011Q4

REPORT INFORMATION
  Report Type: 
  Country: None (occurrence: None)
  Receive Date: 20111216
  Receipt Date: 20110804
  Transmission Date: 20120403
  Serious: No
  Sender: FDA-Public Use
  Company Number: US-BRISTOL-MYERS SQUIBB COMPANY-15948235

PATIENT
  Age: 39 Year
  Sex: Male

DRUGS (3)
  1. ABILIFY [Suspect]
     Indication: ANXIETY
     Dosage: STOPPED THE MEDICATION ~6 WEEKS AGO.
     Dates: end: 20110601
  2. CLOMID [Concomitant]
     Dosage: OFF LABEL
  3. VENLAFAXINE HCL [Concomitant]
     Dosage: VENLAFAXINE ER
     Dates: start: 20110601

REACTIONS (1)
  - ORTHOSTATIC HYPOTENSION [None]
